FAERS Safety Report 22028007 (Version 1)
Quarter: 2023Q1

REPORT INFORMATION
  Report Type: Spontaneous
  Country: US (occurrence: None)
  Receive Date: 20230220
  Receipt Date: 20230220
  Transmission Date: 20230417
  Serious: No
  Sender: FDA-Public Use
  Company Number: None

PATIENT
  Age: 74 Year
  Sex: Male
  Weight: 74.25 kg

DRUGS (5)
  1. TIMOLOL MALEATE OPHTHALMIC SOLUTION [Suspect]
     Active Substance: TIMOLOL MALEATE
     Indication: Glaucoma
     Dosage: OTHER QUANTITY : 10 ML;?FREQUENCY : TWICE A DAY;?
     Route: 047
  2. LIPITOR [Concomitant]
     Active Substance: ATORVASTATIN CALCIUM
  3. CARDURA [Concomitant]
     Active Substance: DOXAZOSIN MESYLATE
  4. COENZYME Q10 [Concomitant]
     Active Substance: DIETARY SUPPLEMENT\UBIDECARENONE
  5. VITAMINS NOS [Concomitant]
     Active Substance: VITAMINS

REACTIONS (4)
  - Eye pruritus [None]
  - Eye irritation [None]
  - Intraocular pressure increased [None]
  - Product formulation issue [None]

NARRATIVE: CASE EVENT DATE: 20230218
